FAERS Safety Report 17412935 (Version 1)
Quarter: 2020Q1

REPORT INFORMATION
  Report Type: Report from Study
  Country: MX (occurrence: MX)
  Receive Date: 20200213
  Receipt Date: 20200213
  Transmission Date: 20200409
  Serious: Yes (Other)
  Sender: FDA-Public Use
  Company Number: MX-ROCHE-2542571

PATIENT

DRUGS (16)
  1. INTERFERON [Suspect]
     Active Substance: INTERFERON
     Indication: METASTATIC NEOPLASM
     Route: 065
  2. DACARBAZINE. [Suspect]
     Active Substance: DACARBAZINE
     Indication: METASTATIC NEOPLASM
     Route: 065
  3. NIVOLUMAB [Suspect]
     Active Substance: NIVOLUMAB
     Indication: METASTATIC NEOPLASM
     Route: 065
  4. BEVACIZUMAB. [Suspect]
     Active Substance: BEVACIZUMAB
     Indication: METASTATIC NEOPLASM
     Route: 065
  5. CISPLATIN. [Suspect]
     Active Substance: CISPLATIN
     Indication: METASTATIC NEOPLASM
     Route: 065
  6. CAPECITABINE. [Suspect]
     Active Substance: CAPECITABINE
     Indication: METASTATIC NEOPLASM
     Route: 048
  7. PACLITAXEL. [Suspect]
     Active Substance: PACLITAXEL
     Indication: METASTATIC NEOPLASM
     Route: 065
  8. PEMETREXED. [Suspect]
     Active Substance: PEMETREXED
     Indication: METASTATIC NEOPLASM
     Route: 065
  9. TRAMETINIB [Suspect]
     Active Substance: TRAMETINIB
     Indication: METASTATIC NEOPLASM
     Route: 065
  10. DABRAFENIB [Suspect]
     Active Substance: DABRAFENIB
     Indication: METASTATIC NEOPLASM
     Route: 065
  11. VEMURAFENIB. [Suspect]
     Active Substance: VEMURAFENIB
     Indication: METASTATIC NEOPLASM
     Route: 065
  12. OXALIPLATIN. [Suspect]
     Active Substance: OXALIPLATIN
     Indication: METASTATIC NEOPLASM
     Route: 065
  13. IPILIMUMAB [Suspect]
     Active Substance: IPILIMUMAB
     Indication: METASTATIC NEOPLASM
     Route: 065
  14. ETOPOSIDE. [Suspect]
     Active Substance: ETOPOSIDE
     Indication: METASTATIC NEOPLASM
     Route: 065
  15. PEMETREXED. [Suspect]
     Active Substance: PEMETREXED
     Indication: METASTATIC NEOPLASM
     Route: 065
  16. PEMBROLIZUMAB. [Suspect]
     Active Substance: PEMBROLIZUMAB
     Indication: METASTATIC NEOPLASM
     Route: 065

REACTIONS (28)
  - Pancreatitis [Unknown]
  - Intestinal obstruction [Unknown]
  - Asthenia [Unknown]
  - Hyperoxia [Unknown]
  - Hypothyroidism [Unknown]
  - Blood thyroid stimulating hormone increased [Unknown]
  - Aspartate aminotransferase increased [Unknown]
  - Diarrhoea [Unknown]
  - Pneumonitis [Unknown]
  - Myalgia [Unknown]
  - Vitiligo [Unknown]
  - Amylase increased [Unknown]
  - Fatigue [Unknown]
  - Rash [Unknown]
  - Blood lactate dehydrogenase increased [Unknown]
  - Hyperglycaemia [Unknown]
  - Pruritus [Unknown]
  - Haemoptysis [Unknown]
  - Enterocolitis haemorrhagic [Unknown]
  - Cardiac tamponade [Unknown]
  - Nausea [Unknown]
  - Vomiting [Unknown]
  - Rhinitis allergic [Unknown]
  - Hypophysitis [Unknown]
  - Alopecia [Unknown]
  - Blood glucose increased [Unknown]
  - Lipase increased [Unknown]
  - Alanine aminotransferase increased [Unknown]
